FAERS Safety Report 5190440-8 (Version None)
Quarter: 2006Q4

REPORT INFORMATION
  Report Type: 
  Country: None (occurrence: None)
  Receive Date: 20061222
  Receipt Date: 20061214
  Transmission Date: 20070319
  Serious: Yes (Hospitalization, Other)
  Sender: FDA-Public Use
  Company Number: US-ELI_LILLY_AND_COMPANY-US200612002806

PATIENT
  Age: 59 Year
  Sex: Female

DRUGS (2)
  1. EVISTA [Suspect]
     Indication: OSTEOPOROSIS
     Dosage: UNK, UNKNOWN
     Route: 048
  2. MIACALCIN [Concomitant]
     Dosage: UNK, UNKNOWN
     Route: 065

REACTIONS (8)
  - BACK PAIN [None]
  - CLOSTRIDIAL INFECTION [None]
  - FRACTURE [None]
  - IMPAIRED HEALING [None]
  - MENINGIOMA [None]
  - NEPHROLITHIASIS [None]
  - STOMACH DISCOMFORT [None]
  - TENDON RUPTURE [None]
